FAERS Safety Report 17934317 (Version 1)
Quarter: 2020Q2

REPORT INFORMATION
  Report Type: Spontaneous
  Country: US (occurrence: US)
  Receive Date: 20200623
  Receipt Date: 20200623
  Transmission Date: 20200714
  Serious: Yes (Hospitalization)
  Sender: FDA-Public Use
  Company Number: None

PATIENT
  Age: 24 Year
  Sex: Female
  Weight: 69.9 kg

DRUGS (1)
  1. REMDESIVIR, 100 MG [Suspect]
     Active Substance: REMDESIVIR
     Indication: COVID-19
     Route: 042
     Dates: start: 20200604, end: 20200613

REACTIONS (3)
  - Cough [None]
  - Dyspnoea [None]
  - Liver function test increased [None]

NARRATIVE: CASE EVENT DATE: 20200608
